FAERS Safety Report 6476448-0 (Version None)
Quarter: 2009Q4

REPORT INFORMATION
  Report Type: 
  Country: None (occurrence: None)
  Receive Date: 20091207
  Receipt Date: 20091125
  Transmission Date: 20100525
  Serious: Yes (Hospitalization, Other)
  Sender: FDA-Public Use
  Company Number: DE-RANBAXY-2009US-21751

PATIENT

DRUGS (1)
  1. NITROFURANTOIN [Suspect]
     Indication: URINARY TRACT INFECTION
     Dosage: 100 MG, QD
     Route: 065

REACTIONS (3)
  - CHEST PAIN [None]
  - HEPATITIS [None]
  - ORGANISING PNEUMONIA [None]
